FAERS Safety Report 4594695-X (Version None)
Quarter: 2005Q1

REPORT INFORMATION
  Report Type: 
  Country: None (occurrence: None)
  Receive Date: 20050301
  Receipt Date: 20050105
  Transmission Date: 20050727
  Serious: No
  Sender: FDA-Public Use
  Company Number: US-BRISTOL-MYERS SQUIBB COMPANY-12815338

PATIENT
  Age: 67 Year
  Sex: Male

DRUGS (2)
  1. ERBITUX [Suspect]
     Indication: COLON CANCER
     Dosage: 5TH DOSE
     Route: 042
     Dates: start: 20041231
  2. CPT-11 [Concomitant]

REACTIONS (2)
  - LIP PAIN [None]
  - SWELLING FACE [None]
